FAERS Safety Report 5900881-6 (Version None)
Quarter: 2008Q3

REPORT INFORMATION
  Report Type: 
  Country: None (occurrence: None)
  Receive Date: 20080925
  Receipt Date: 20080909
  Transmission Date: 20090109
  Serious: Yes (Hospitalization)
  Sender: FDA-Public Use
  Company Number: DSA_32338_2008

PATIENT
  Sex: Male

DRUGS (5)
  1. LORAZEPAM [Suspect]
     Dosage: (2.5 MG 1X NOT THE PRESCRIBED AMOUNT ORAL)
     Route: 048
     Dates: start: 20080820, end: 20080820
  2. DISTRANEURIN /00027502/ (DISTRANEURIN [Suspect]
     Dosage: (1536 MG 1X NOT THE PRESCRIBED AMOUNT ORAL)
     Route: 048
     Dates: start: 20080820, end: 20080820
  3. ALCOHOL (ALCOHOL - ETHANOL) [Suspect]
     Dosage: (1 BOTTLE OF BEER ORAL)
     Route: 048
     Dates: start: 20080820, end: 20080820
  4. AMPHETAMINE SULFATE [Suspect]
     Dosage: (1 G 1X NASAL)
     Route: 045
     Dates: start: 20080820, end: 20080820
  5. COCAINE (COCAINE) [Suspect]
     Dosage: (4 G 1X NASAL)
     Route: 045
     Dates: start: 20080820, end: 20080820

REACTIONS (9)
  - AGGRESSION [None]
  - ALCOHOL USE [None]
  - DRUG ABUSE [None]
  - DRY MOUTH [None]
  - HYPERHIDROSIS [None]
  - HYPERVENTILATION [None]
  - INTENTIONAL OVERDOSE [None]
  - LIVER FUNCTION TEST ABNORMAL [None]
  - TACHYCARDIA [None]
